FAERS Safety Report 25994891 (Version 1)
Quarter: 2025Q4

REPORT INFORMATION
  Report Type: Spontaneous
  Country: US (occurrence: US)
  Receive Date: 20251104
  Receipt Date: 20251104
  Transmission Date: 20260118
  Serious: No
  Sender: Onesource Specialty Pharma
  Company Number: US-STRIDES ARCOLAB LIMITED-2025-ST-000309

PATIENT
  Age: 56 Year
  Sex: Female

DRUGS (17)
  1. BUPIVACAINE [Suspect]
     Active Substance: BUPIVACAINE
     Indication: Spinal pain
     Dosage: 4 MILLIGRAM, QD
     Route: 037
  2. BUPIVACAINE [Suspect]
     Active Substance: BUPIVACAINE
     Dosage: 4 MILLIGRAM, QD, ROUTINE PUMP REFILL
     Route: 037
  3. BUPIVACAINE [Suspect]
     Active Substance: BUPIVACAINE
     Dosage: UNK, INJECTION
     Route: 058
  4. MORPHINE [Suspect]
     Active Substance: MORPHINE
     Indication: Spinal pain
     Dosage: 2 MILLIGRAM, QD
     Route: 037
  5. MORPHINE [Suspect]
     Active Substance: MORPHINE
     Dosage: 2 MILLIGRAM, QD, ROUTINE PUMP REFILL
     Route: 037
  6. MORPHINE [Suspect]
     Active Substance: MORPHINE
     Dosage: UNK, INJECTION
     Route: 058
  7. ZICONOTIDE [Suspect]
     Active Substance: ZICONOTIDE
     Indication: Spinal pain
     Dosage: 0.4 MILLIGRAM, QD
     Route: 037
  8. ZICONOTIDE [Suspect]
     Active Substance: ZICONOTIDE
     Dosage: 0.4 MILLIGRAM, QD
     Route: 037
  9. ZICONOTIDE [Suspect]
     Active Substance: ZICONOTIDE
     Dosage: UNK, INJECTION
     Route: 058
  10. DIPHENHYDRAMINE [Concomitant]
     Active Substance: DIPHENHYDRAMINE
     Indication: Product used for unknown indication
     Dosage: 25 MILLIGRAM
     Route: 042
  11. LORAZEPAM [Concomitant]
     Active Substance: LORAZEPAM
     Indication: Drug withdrawal syndrome
     Dosage: 0.5 MILLIGRAM, QD, AS NEEDED.
     Route: 065
  12. LORAZEPAM [Concomitant]
     Active Substance: LORAZEPAM
     Dosage: UNK, AS NEEDED
     Route: 065
  13. CITALOPRAM [Concomitant]
     Active Substance: CITALOPRAM
     Indication: Product used for unknown indication
     Dosage: 40 MILLIGRAM, QD
     Route: 065
  14. BACLOFEN [Concomitant]
     Active Substance: BACLOFEN
     Indication: Spinal pain
     Dosage: 10 MILLIGRAM, QD
     Route: 065
  15. METHYLPHENIDATE [Concomitant]
     Active Substance: METHYLPHENIDATE
     Indication: Product used for unknown indication
     Dosage: 10 MILLIGRAM, QD
     Route: 065
  16. APIXABAN [Concomitant]
     Active Substance: APIXABAN
     Indication: Product used for unknown indication
     Dosage: 5 MILLIGRAM, BID
     Route: 065
  17. ONDANSETRON [Concomitant]
     Active Substance: ONDANSETRON
     Indication: Product used for unknown indication
     Dosage: 8 MILLIGRAM, AS NEEDED
     Route: 065

REACTIONS (2)
  - Medication error [Unknown]
  - Off label use [Unknown]
